FAERS Safety Report 12503873 (Version 1)
Quarter: 2016Q2

REPORT INFORMATION
  Report Type: Spontaneous
  Country: ES (occurrence: ES)
  Receive Date: 20160628
  Receipt Date: 20160628
  Transmission Date: 20160815
  Serious: Yes (Death, Other)
  Sender: FDA-Public Use
  Company Number: ES-CELGENEUS-ESP-2016063227

PATIENT

DRUGS (2)
  1. GEMCITABINE [Concomitant]
     Active Substance: GEMCITABINE\GEMCITABINE HYDROCHLORIDE
     Indication: BREAST CANCER METASTATIC
     Route: 065
  2. ABRAXANE [Suspect]
     Active Substance: PACLITAXEL
     Indication: BREAST CANCER METASTATIC
     Route: 041

REACTIONS (7)
  - Skin disorder [Unknown]
  - Death [Fatal]
  - Pancytopenia [Unknown]
  - Diarrhoea [Unknown]
  - Staphylococcal scalded skin syndrome [Unknown]
  - Breast cancer metastatic [Unknown]
  - Neutropenia [Unknown]
